FAERS Safety Report 18174653 (Version 2)
Quarter: 2023Q1

REPORT INFORMATION
  Report Type: Report from Study
  Country: US (occurrence: US)
  Receive Date: 20200820
  Receipt Date: 20230222
  Transmission Date: 20230418
  Serious: Yes (Other)
  Sender: FDA-Public Use
  Company Number: US-PFIZER INC-2020322554

PATIENT
  Age: 78 Year
  Sex: Male

DRUGS (16)
  1. SPIRONOLACTONE [Suspect]
     Active Substance: SPIRONOLACTONE
     Dosage: UNK
  2. HYDROCHLOROTHIAZIDE [Suspect]
     Active Substance: HYDROCHLOROTHIAZIDE
     Dosage: UNK
     Dates: end: 202007
  3. KORLYM [Suspect]
     Active Substance: MIFEPRISTONE
     Indication: Cushing^s syndrome
     Dosage: 300 MG, 1X/DAY (300MG, QD, ORAL)
     Route: 048
     Dates: start: 20190310, end: 20190322
  4. KORLYM [Suspect]
     Active Substance: MIFEPRISTONE
     Dosage: 600 MG, 1X/DAY (600MG,QD, ORAL)
     Route: 048
     Dates: start: 20190323
  5. TOUJEO [Concomitant]
     Active Substance: INSULIN GLARGINE
     Dosage: UNK
  6. VICTOZA [Concomitant]
     Active Substance: LIRAGLUTIDE
     Dosage: UNK
  7. OMEPRAZOLE [Concomitant]
     Active Substance: OMEPRAZOLE
     Dosage: UNK
  8. NOVOLOG [Concomitant]
     Active Substance: INSULIN ASPART
     Dosage: UNK
  9. METOPROLOL TARTRATE [Concomitant]
     Active Substance: METOPROLOL TARTRATE
     Dosage: UNK
  10. LOSARTAN [Concomitant]
     Active Substance: LOSARTAN
     Dosage: UNK
  11. ISOSORBIDE [Concomitant]
     Active Substance: ISOSORBIDE
     Dosage: UNK
  12. GLIMEPIRIDE [Concomitant]
     Active Substance: GLIMEPIRIDE
     Dosage: UNK
  13. LASIX [Concomitant]
     Active Substance: FUROSEMIDE
     Dosage: UNK
  14. ATORVASTATIN [Concomitant]
     Active Substance: ATORVASTATIN
     Dosage: 10 MG
  15. AMLODIPINE [Concomitant]
     Active Substance: AMLODIPINE BESYLATE
     Dosage: UNK
  16. ASPIRIN [Concomitant]
     Active Substance: ASPIRIN
     Dosage: UNK

REACTIONS (1)
  - Renal impairment [Unknown]

NARRATIVE: CASE EVENT DATE: 20200101
